FAERS Safety Report 21866850 (Version 8)
Quarter: 2024Q1

REPORT INFORMATION
  Report Type: Spontaneous
  Country: US (occurrence: US)
  Receive Date: 20230116
  Receipt Date: 20240314
  Transmission Date: 20240410
  Serious: Yes (Other)
  Sender: FDA-Public Use
  Company Number: US-PFIZER INC-PV202300008352

PATIENT
  Age: 81 Year
  Sex: Female
  Weight: 69.39 kg

DRUGS (2)
  1. TIKOSYN [Suspect]
     Active Substance: DOFETILIDE
     Indication: Atrial fibrillation
     Dosage: 125 UG, 2X/DAY
  2. TIKOSYN [Suspect]
     Active Substance: DOFETILIDE
     Dosage: 500 UG, 2X/DAY (1 CAPSULE EVERY 12 HOURS)
     Route: 048

REACTIONS (3)
  - Mental impairment [Unknown]
  - Arthropathy [Unknown]
  - Gait disturbance [Unknown]
